FAERS Safety Report 10402887 (Version 13)
Quarter: 2016Q2

REPORT INFORMATION
  Report Type: Spontaneous
  Country: US (occurrence: US)
  Receive Date: 20140822
  Receipt Date: 20160511
  Transmission Date: 20160815
  Serious: Yes (Hospitalization, Disabling, Other)
  Sender: FDA-Public Use
  Company Number: US-ELI_LILLY_AND_COMPANY-US201408004707

PATIENT
  Sex: Male

DRUGS (23)
  1. CLONIDINE                          /00171102/ [Concomitant]
     Active Substance: CLONIDINE
     Indication: SLEEP DISORDER
     Dosage: 0.1 MG, PRN
     Route: 065
     Dates: start: 20120725
  2. CLONIDINE                          /00171102/ [Concomitant]
     Active Substance: CLONIDINE
     Indication: IRRITABILITY
  3. CYMBALTA [Suspect]
     Active Substance: DULOXETINE HYDROCHLORIDE
     Indication: FIBROMYALGIA
     Dosage: 30 MG, QD
     Route: 048
     Dates: start: 20061208
  4. CYMBALTA [Suspect]
     Active Substance: DULOXETINE HYDROCHLORIDE
     Dosage: 30 MG, TID
     Route: 048
  5. CYMBALTA [Suspect]
     Active Substance: DULOXETINE HYDROCHLORIDE
     Dosage: 70 MG, QD
     Route: 048
  6. CLARITIN [Concomitant]
     Active Substance: LORATADINE
  7. LOTRIMIN ULTRA [Concomitant]
     Active Substance: BUTENAFINE HYDROCHLORIDE
     Indication: TINEA CRURIS
     Dosage: UNK, BID
     Route: 061
     Dates: start: 20111212, end: 20120117
  8. DIPHENHYDRAMINE. [Concomitant]
     Active Substance: DIPHENHYDRAMINE
  9. LOTRISONE [Concomitant]
     Active Substance: BETAMETHASONE DIPROPIONATE\CLOTRIMAZOLE
     Indication: TINEA CRURIS
     Dosage: UNK, BID
     Route: 061
     Dates: start: 20111230, end: 20120117
  10. CYMBALTA [Suspect]
     Active Substance: DULOXETINE HYDROCHLORIDE
     Indication: DEPRESSION
     Dosage: 30 MG, BID
     Route: 048
     Dates: start: 20061214
  11. IBUPROFEN. [Concomitant]
     Active Substance: IBUPROFEN
     Dosage: UNK, OTHER
     Route: 065
  12. CYMBALTA [Suspect]
     Active Substance: DULOXETINE HYDROCHLORIDE
     Dosage: 60 MG, QD
     Route: 048
  13. CYMBALTA [Suspect]
     Active Substance: DULOXETINE HYDROCHLORIDE
     Dosage: 20 MG, QD
     Route: 048
     Dates: end: 20121022
  14. TYLENOL [Concomitant]
     Active Substance: ACETAMINOPHEN
  15. CYMBALTA [Suspect]
     Active Substance: DULOXETINE HYDROCHLORIDE
     Dosage: 40 MG, BID
     Route: 048
  16. CYMBALTA [Suspect]
     Active Substance: DULOXETINE HYDROCHLORIDE
     Dosage: 75 MG, QD
     Route: 048
  17. PROZAC [Concomitant]
     Active Substance: FLUOXETINE HYDROCHLORIDE
     Dosage: 20 MG, TID
     Route: 048
  18. FINASTERIDE. [Concomitant]
     Active Substance: FINASTERIDE
     Indication: ALOPECIA
     Dosage: 0.5 DF, QD
     Route: 048
  19. DIFLUCAN [Concomitant]
     Active Substance: FLUCONAZOLE
     Indication: TINEA CRURIS
     Dosage: 150 MG, SINGLE
     Route: 048
     Dates: start: 20111230, end: 20111230
  20. MYCOSTATIN [Concomitant]
     Active Substance: NYSTATIN
     Indication: TINEA CRURIS
     Dosage: UNK, QID
     Route: 061
     Dates: start: 20111212, end: 20120117
  21. CYMBALTA [Suspect]
     Active Substance: DULOXETINE HYDROCHLORIDE
     Dosage: 40 MG, QD
     Route: 048
  22. INVEGA [Concomitant]
     Active Substance: PALIPERIDONE
     Indication: AGITATION
     Dosage: 1.5 - 3.0 MG, BID
     Route: 065
     Dates: start: 20120615
  23. INVEGA [Concomitant]
     Active Substance: PALIPERIDONE
     Indication: IRRITABILITY

REACTIONS (48)
  - Drug withdrawal syndrome [Recovering/Resolving]
  - Insomnia [Recovering/Resolving]
  - Serotonin syndrome [Recovering/Resolving]
  - Nausea [Unknown]
  - Muscle spasms [Unknown]
  - Confusional state [Unknown]
  - Vomiting [Recovering/Resolving]
  - Amnesia [Recovering/Resolving]
  - Abdominal discomfort [Recovering/Resolving]
  - Bladder pain [Recovering/Resolving]
  - Influenza like illness [Recovering/Resolving]
  - Thinking abnormal [Unknown]
  - Urinary retention [Unknown]
  - Rash papular [Unknown]
  - Mental disorder [Recovering/Resolving]
  - Tremor [Unknown]
  - Vision blurred [Unknown]
  - Vomiting [Unknown]
  - Suicidal ideation [Unknown]
  - Suicide attempt [Recovered/Resolved]
  - Nausea [Recovering/Resolving]
  - Crying [Recovering/Resolving]
  - Intentional product misuse [Recovered/Resolved]
  - Paraesthesia [Recovered/Resolved]
  - Muscle spasms [Recovering/Resolving]
  - Dizziness [Recovering/Resolving]
  - Diarrhoea [Recovering/Resolving]
  - Tremor [Recovering/Resolving]
  - Activities of daily living impaired [Recovering/Resolving]
  - Fibromyalgia [Recovering/Resolving]
  - Headache [Recovering/Resolving]
  - Staring [Recovering/Resolving]
  - Eating disorder [Recovering/Resolving]
  - Dependence [Unknown]
  - Anxiety [Recovered/Resolved]
  - Libido decreased [Unknown]
  - Pain [Recovering/Resolving]
  - Reading disorder [Recovering/Resolving]
  - Muscle twitching [Recovering/Resolving]
  - Flashback [Recovering/Resolving]
  - Automatic bladder [Unknown]
  - Urinary hesitation [Unknown]
  - Dyspnoea [Unknown]
  - Hyperhidrosis [Recovering/Resolving]
  - Palpitations [Recovering/Resolving]
  - Disturbance in attention [Recovering/Resolving]
  - Mood swings [Recovering/Resolving]
  - Nervousness [Unknown]
